FAERS Safety Report 8087444-4 (Version None)
Quarter: 2012Q1

REPORT INFORMATION
  Report Type: 
  Country: None (occurrence: None)
  Receive Date: 20120128
  Receipt Date: 20110524
  Transmission Date: 20120608
  Serious: No
  Sender: FDA-Public Use
  Company Number: US-ABBOTT-11P-163-0728056-00

PATIENT
  Sex: Female

DRUGS (2)
  1. HUMIRA [Suspect]
     Indication: RHEUMATOID ARTHRITIS
     Dosage: PRE-FILLED SYRINGES
     Route: 058
     Dates: start: 20050101, end: 20110101
  2. HUMIRA [Suspect]
     Dosage: PENS
     Route: 058
     Dates: start: 20110101

REACTIONS (1)
  - RASH [None]
